FAERS Safety Report 19147875 (Version 1)
Quarter: 2021Q2

REPORT INFORMATION
  Report Type: Spontaneous
  Country: DE (occurrence: DE)
  Receive Date: 20210417
  Receipt Date: 20210417
  Transmission Date: 20210717
  Serious: Yes (Life-Threatening, Hospitalization, Disabling, Congenital Anomaly, Other)
  Sender: FDA-Public Use
  Company Number: DE-AUROBINDO-AUR-APL-2017-11774

PATIENT
  Sex: Male
  Weight: 1.85 kg

DRUGS (1)
  1. VALSARTAN. [Suspect]
     Active Substance: VALSARTAN
     Indication: ESSENTIAL HYPERTENSION
     Dosage: UNK
     Route: 064

REACTIONS (14)
  - Pneumothorax [Unknown]
  - Congenital cystic kidney disease [Unknown]
  - Hypotonia [Unknown]
  - Oligohydramnios [Unknown]
  - Pregnancy [Unknown]
  - Deafness neurosensory [Unknown]
  - Persistent foetal circulation [Unknown]
  - Pulmonary hypoplasia [Unknown]
  - Skull malformation [Unknown]
  - Hypotension [Recovered/Resolved]
  - Hand deformity [Unknown]
  - Foetal exposure during pregnancy [Unknown]
  - Renal failure [Unknown]
  - Muscular weakness [Unknown]
